FAERS Safety Report 9225549 (Version 1)
Quarter: 2013Q1

REPORT INFORMATION
  Report Type: Spontaneous
  Country: US (occurrence: None)
  Receive Date: 20120912
  Receipt Date: 20120912
  Transmission Date: 20140127
  Serious: No
  Sender: FDA-Public Use
  Company Number: 2012SP029108

PATIENT
  Sex: Female

DRUGS (1)
  1. SAPHRIS [Suspect]
     Indication: PRODUCT USED FOR UNKNOWN INDICATION
     Route: 060

REACTIONS (4)
  - Therapeutic response unexpected [None]
  - Drug diversion [None]
  - Underdose [None]
  - Inappropriate schedule of drug administration [None]
